FAERS Safety Report 8170453-4 (Version None)
Quarter: 2012Q1

REPORT INFORMATION
  Report Type: 
  Country: None (occurrence: None)
  Receive Date: 20120104
  Receipt Date: 20111118
  Transmission Date: 20120608
  Serious: No
  Sender: FDA-Public Use
  Company Number: 2011HGS-002847

PATIENT
  Age: 50 Year
  Sex: Female
  Weight: 62.5964 kg

DRUGS (8)
  1. PLAQUENIL (HYDROXYCHLOROQUINE SULFATE) (HYDROXYCHLOROQUINE SULFATE) [Concomitant]
  2. CALCIUM WITH VITAMIN D (CALCIUM WITH VITAMIN D) (ERGOCALCIFEROL, CALCI [Concomitant]
  3. ZOFRAN (ONDANSETRON HYDROCHLORIDE) (ONDANSETRON HYDROCHLORIDE) [Concomitant]
  4. BENLYSTA [Suspect]
     Indication: SYSTEMIC LUPUS ERYTHEMATOSUS
     Dosage: 10 MG/KG, 1 IN 28 D, INTRAVENOUS DRIP
     Route: 041
     Dates: start: 20110715
  5. CLONAZEPAM [Concomitant]
  6. MIGRAINL (DIHYDROERGOTAMINE MESILATE) (DIHYDROERGOTAMINE MESILATE) [Concomitant]
  7. ESTRADIOL [Concomitant]
  8. LYRICA [Concomitant]

REACTIONS (3)
  - DECREASED APPETITE [None]
  - NAUSEA [None]
  - FATIGUE [None]
